FAERS Safety Report 4363559-9 (Version None)
Quarter: 2004Q2

REPORT INFORMATION
  Report Type: 
  Country: None (occurrence: None)
  Receive Date: 20040518
  Receipt Date: 20040506
  Transmission Date: 20050107
  Serious: Yes (Hospitalization)
  Sender: FDA-Public Use
  Company Number: 2004212724IE

PATIENT
  Age: 5 Year
  Sex: Female
  Weight: 15.4 kg

DRUGS (1)
  1. GENOTROPIN [Suspect]
     Indication: FOETAL GROWTH RETARDATION
     Dosage: 0.4 MG, QD, SUBCUTANEOUS
     Route: 058
     Dates: start: 20020701

REACTIONS (2)
  - ABDOMINAL PAIN [None]
  - HAEMATURIA [None]
